FAERS Safety Report 8984660 (Version 2)
Quarter: 2013Q1

REPORT INFORMATION
  Report Type: Spontaneous
  Country: AT (occurrence: AT)
  Receive Date: 20121226
  Receipt Date: 20130205
  Transmission Date: 20140127
  Serious: Yes (Other)
  Sender: FDA-Public Use
  Company Number: AT-JNJFOC-20121206728

PATIENT
  Age: 63 Year
  Sex: Male
  Weight: 94 kg

DRUGS (2)
  1. STELARA [Suspect]
     Indication: PSORIASIS
     Route: 058
     Dates: start: 200911
  2. NEOTIGASON [Concomitant]
     Indication: NEOPLASM MALIGNANT
     Route: 048
     Dates: start: 20120914

REACTIONS (1)
  - Malignant melanoma [Unknown]
